FAERS Safety Report 6076601-4 (Version None)
Quarter: 2009Q1

REPORT INFORMATION
  Report Type: 
  Country: None (occurrence: None)
  Receive Date: 20090213
  Receipt Date: 20081024
  Transmission Date: 20090719
  Serious: No
  Sender: FDA-Public Use
  Company Number: US-BRISTOL-MYERS SQUIBB COMPANY-14383160

PATIENT
  Sex: Female

DRUGS (1)
  1. IXEMPRA KIT [Suspect]

REACTIONS (6)
  - CHROMATURIA [None]
  - CONFUSIONAL STATE [None]
  - DELUSION [None]
  - FATIGUE [None]
  - MUSCLE ATROPHY [None]
  - VOMITING [None]
